FAERS Safety Report 8387826-7 (Version None)
Quarter: 2012Q2

REPORT INFORMATION
  Report Type: 
  Country: None (occurrence: None)
  Receive Date: 20120525
  Receipt Date: 20120326
  Transmission Date: 20120825
  Serious: No
  Sender: FDA-Public Use
  Company Number: US-BRISTOL-MYERS SQUIBB COMPANY-16475998

PATIENT
  Age: 46 Year
  Sex: Female
  Weight: 69 kg

DRUGS (4)
  1. KOMBIGLYZE XR [Suspect]
     Dosage: 1DF=2.5/1000MG
  2. GLUCOSAMINE [Concomitant]
  3. ALLEGRA [Concomitant]
  4. LEVOTHYROXINE SODIUM [Concomitant]

REACTIONS (2)
  - CONSTIPATION [None]
  - BLOOD GLUCOSE INCREASED [None]
